FAERS Safety Report 9634501 (Version 2)
Quarter: 2013Q4

REPORT INFORMATION
  Report Type: Spontaneous
  Country: US (occurrence: US)
  Receive Date: 20131021
  Receipt Date: 20131021
  Transmission Date: 20140711
  Serious: No
  Sender: FDA-Public Use
  Company Number: US-PURDUE-USA-2013-0101045

PATIENT
  Age: 76 Year
  Sex: Female
  Weight: 68.03 kg

DRUGS (3)
  1. BUTRANS [Suspect]
     Indication: ABDOMINAL PAIN UPPER
     Dosage: 10 MCG/HR, UNK
     Route: 062
     Dates: start: 20130205, end: 20130210
  2. BUTRANS [Suspect]
     Indication: BONE PAIN
  3. LAXATIVE [Concomitant]
     Indication: COLONOSCOPY
     Dosage: 4 LITERS BEFORE PROCEDURE
     Route: 048
     Dates: start: 20130206, end: 20130206

REACTIONS (4)
  - Drug intolerance [Unknown]
  - Hypersensitivity [Unknown]
  - Drug ineffective [Unknown]
  - Urticaria [Unknown]
